FAERS Safety Report 9779566 (Version 2)
Quarter: 2013Q4

REPORT INFORMATION
  Report Type: Report from Study
  Country: JP (occurrence: JP)
  Receive Date: 20131223
  Receipt Date: 20131223
  Transmission Date: 20140711
  Serious: Yes (Hospitalization)
  Sender: FDA-Public Use
  Company Number: JP-ASTRAZENECA-2013SE92033

PATIENT
  Age: 80 Year
  Sex: Female

DRUGS (16)
  1. CRESTOR [Suspect]
     Indication: HYPERCHOLESTEROLAEMIA
     Route: 048
     Dates: start: 20121121
  2. JANUVIA [Concomitant]
     Indication: DIABETES MELLITUS
     Route: 065
     Dates: start: 20110719, end: 20130523
  3. LEVEMIR [Concomitant]
     Indication: DIABETES MELLITUS
     Route: 065
     Dates: start: 20111205, end: 20130827
  4. LEVEMIR [Concomitant]
     Indication: DIABETES MELLITUS
     Route: 065
     Dates: start: 20130828
  5. METGLUCO [Concomitant]
     Indication: DIABETES MELLITUS
     Route: 065
     Dates: start: 20111219
  6. INNOLET R [Concomitant]
     Indication: DIABETES MELLITUS
     Route: 065
     Dates: start: 20120926, end: 20130730
  7. EQUA [Concomitant]
     Indication: DIABETES MELLITUS
     Route: 065
     Dates: start: 20130524
  8. NOVORAPID [Concomitant]
     Indication: DIABETES MELLITUS
     Route: 065
     Dates: start: 20130731, end: 20130924
  9. NOVORAPID [Concomitant]
     Indication: DIABETES MELLITUS
     Route: 065
     Dates: start: 20130925
  10. MICARDIS [Concomitant]
     Indication: HYPERTENSION
     Route: 065
     Dates: start: 20090113
  11. AMLODIPINE OD [Concomitant]
     Indication: HYPERTENSION
     Route: 065
     Dates: start: 20120829
  12. MAGNESIUM OXIDE [Concomitant]
     Route: 048
     Dates: start: 20091221
  13. LIMAPROST ALFADEX [Concomitant]
     Route: 065
     Dates: start: 20110704
  14. ALOSENN [Concomitant]
     Route: 048
     Dates: start: 20121019
  15. TOVIAZ [Concomitant]
     Route: 065
     Dates: start: 20131010
  16. OXYBUTYNIN HYDROCHLORIDE [Concomitant]
     Route: 062
     Dates: start: 20131010

REACTIONS (2)
  - Angioplasty [Unknown]
  - Microalbuminuria [Unknown]
